FAERS Safety Report 7572863-2 (Version None)
Quarter: 2011Q2

REPORT INFORMATION
  Report Type: 
  Country: None (occurrence: None)
  Receive Date: 20110627
  Receipt Date: 20110613
  Transmission Date: 20111010
  Serious: Yes (Other)
  Sender: FDA-Public Use
  Company Number: JP-ELI_LILLY_AND_COMPANY-JP201105005331

PATIENT
  Sex: Male
  Weight: 75 kg

DRUGS (6)
  1. CYMBALTA [Suspect]
     Indication: DEPRESSION
     Dosage: 20 MG, QD
     Route: 048
     Dates: start: 20101018, end: 20101031
  2. RIZE [Concomitant]
     Indication: DEPRESSION
     Dosage: 5 MG, BID
     Route: 048
     Dates: start: 20101220
  3. MIRTAZAPINE [Concomitant]
     Indication: DEPRESSION
     Dosage: 15 MG, QD
     Route: 048
     Dates: start: 20101018
  4. CYMBALTA [Suspect]
     Dosage: 20 MG, QD
     Route: 048
     Dates: start: 20101130, end: 20101220
  5. ERIMIN [Concomitant]
     Indication: DEPRESSION
     Dosage: 5 MG, QD
     Route: 048
     Dates: start: 20101018
  6. CYMBALTA [Suspect]
     Dosage: 20 MG, BID
     Route: 048
     Dates: start: 20101101, end: 20101129

REACTIONS (3)
  - WITHDRAWAL SYNDROME [None]
  - LOSS OF CONSCIOUSNESS [None]
  - CHILLS [None]
